FAERS Safety Report 19055727 (Version 11)
Quarter: 2021Q4

REPORT INFORMATION
  Report Type: Report from Study
  Country: IT (occurrence: None)
  Receive Date: 20210325
  Receipt Date: 20211112
  Transmission Date: 20220303
  Serious: Yes (Death, Life-Threatening, Hospitalization)
  Sender: FDA-Public Use
  Company Number: IT-EISAI MEDICAL RESEARCH-EC-2021-088731

PATIENT
  Age: 71 Year
  Sex: Male
  Weight: 67 kg

DRUGS (14)
  1. LENVATINIB [Suspect]
     Active Substance: LENVATINIB
     Indication: Non-small cell lung cancer metastatic
     Route: 048
     Dates: start: 20210112, end: 20210217
  2. MOVICOL [Concomitant]
     Active Substance: POLYETHYLENE GLYCOL 3350\POTASSIUM CHLORIDE\SODIUM BICARBONATE\SODIUM CHLORIDE
     Dates: start: 20210115
  3. TRAMADOL HYDROCHLORIDE [Concomitant]
     Active Substance: TRAMADOL HYDROCHLORIDE
     Dates: start: 20210115, end: 20210217
  4. DEXAMETHASONE [Concomitant]
     Active Substance: DEXAMETHASONE
     Dates: start: 20210126
  5. PECFENT [Concomitant]
     Active Substance: FENTANYL CITRATE
     Dates: start: 20210126
  6. OLMESARTAN MEDOXOMIL [Concomitant]
     Active Substance: OLMESARTAN MEDOXOMIL
     Dates: start: 20210126
  7. FENTANYL [Concomitant]
     Active Substance: FENTANYL
     Dates: start: 20210127
  8. FLUIMUCIL [Concomitant]
     Active Substance: ACETYLCYSTEINE
     Dates: start: 20210201, end: 20210217
  9. CALCIUM CARBONATE\CHOLECALCIFEROL [Concomitant]
     Active Substance: CALCIUM CARBONATE\CHOLECALCIFEROL
     Dates: start: 20210202, end: 20210228
  10. ASCORBIC ACID;RETINOL;TOCOPHEROL [Concomitant]
     Dates: start: 20210202
  11. OMEPRAZEN [OMEPRAZOLE SODIUM] [Concomitant]
     Dates: start: 20200124
  12. LASIX [Concomitant]
     Active Substance: FUROSEMIDE
     Dates: start: 20200922
  13. ALLOPURINOL [Concomitant]
     Active Substance: ALLOPURINOL
     Dates: start: 20201120
  14. ASPIRIN [Concomitant]
     Active Substance: ASPIRIN
     Dates: start: 20201128

REACTIONS (1)
  - Condition aggravated [Fatal]

NARRATIVE: CASE EVENT DATE: 20210217
